FAERS Safety Report 17592356 (Version 1)
Quarter: 2020Q1

REPORT INFORMATION
  Report Type: Report from Study
  Country: US (occurrence: US)
  Receive Date: 20200327
  Receipt Date: 20200327
  Transmission Date: 20200409
  Serious: Yes (Hospitalization)
  Sender: FDA-Public Use
  Company Number: US-BAYER-2020-041010

PATIENT
  Age: 79 Year
  Sex: Female
  Weight: 67.12 kg

DRUGS (5)
  1. XARELTO [Concomitant]
     Active Substance: RIVAROXABAN
  2. REMODULIN [Concomitant]
     Active Substance: TREPROSTINIL
  3. ADEMPAS [Suspect]
     Active Substance: RIOCIGUAT
     Indication: PULMONARY ARTERIAL HYPERTENSION
     Dosage: 2.5 MG, TID
     Route: 048
  4. ADEMPAS [Suspect]
     Active Substance: RIOCIGUAT
     Indication: PULMONARY ARTERIAL HYPERTENSION
     Dosage: UNK
     Route: 048
     Dates: start: 20191101
  5. ORENITRAM [Concomitant]
     Active Substance: TREPROSTINIL

REACTIONS (4)
  - Decreased appetite [Not Recovered/Not Resolved]
  - Abdominal discomfort [None]
  - Chest pain [Recovered/Resolved]
  - Asthenia [None]

NARRATIVE: CASE EVENT DATE: 202003
